FAERS Safety Report 14180103 (Version 2)
Quarter: 2017Q4

REPORT INFORMATION
  Report Type: Spontaneous
  Country: US (occurrence: US)
  Receive Date: 20171110
  Receipt Date: 20171110
  Transmission Date: 20180321
  Serious: Yes (Death, Life-Threatening, Other)
  Sender: FDA-Public Use
  Company Number: US-TEVA-725375USA

PATIENT
  Sex: Female

DRUGS (2)
  1. ESCITALOPRAM [Concomitant]
     Active Substance: ESCITALOPRAM OXALATE
     Route: 065
  2. LOPERAMIDE [Suspect]
     Active Substance: LOPERAMIDE
     Indication: SUICIDE ATTEMPT
     Route: 065

REACTIONS (2)
  - Toxicity to various agents [Fatal]
  - Suicide attempt [Fatal]
